FAERS Safety Report 25488184 (Version 1)
Quarter: 2025Q2

REPORT INFORMATION
  Report Type: Spontaneous
  Country: US (occurrence: US)
  Receive Date: 20250627
  Receipt Date: 20250627
  Transmission Date: 20250716
  Serious: Yes (Other)
  Sender: PFIZER
  Company Number: US-MLMSERVICE-20250613-PI543214-00108-1

PATIENT
  Age: 57 Year
  Sex: Female

DRUGS (31)
  1. CIPROFLOXACIN [Interacting]
     Active Substance: CIPROFLOXACIN
     Indication: Cellulitis
     Dosage: 500 MG, 2X/DAY (DAY 5 OF HOSPITALIZATION)
  2. CIPROFLOXACIN [Interacting]
     Active Substance: CIPROFLOXACIN
     Indication: Enterobacter infection
     Dosage: 500 MG, 2X/DAY, DAY 2
  3. CIPROFLOXACIN [Interacting]
     Active Substance: CIPROFLOXACIN
     Dosage: 500 MG, 2X/DAY, DAY 3
  4. CIPROFLOXACIN [Interacting]
     Active Substance: CIPROFLOXACIN
     Dosage: 500 MG, 2X/DAY, DAY 4
  5. CIPROFLOXACIN [Interacting]
     Active Substance: CIPROFLOXACIN
     Dosage: 500 MG, 2X/DAY, DAY 5
  6. CIPROFLOXACIN [Interacting]
     Active Substance: CIPROFLOXACIN
     Dosage: 500 MG, 2X/DAY, DAY 6
  7. CIPROFLOXACIN [Interacting]
     Active Substance: CIPROFLOXACIN
     Dosage: 500 MG, 2X/DAY, DAY 7
  8. CLOZAPINE [Interacting]
     Active Substance: CLOZAPINE
     Indication: Schizophrenia
     Dosage: 325 MG, 1X/DAY (NIGHTLY; DISINTEGRATING TABLET)
     Route: 048
  9. CLOZAPINE [Interacting]
     Active Substance: CLOZAPINE
     Dosage: 200 MG, 1X/DAY (NIGHTLY)
  10. CLOZAPINE [Interacting]
     Active Substance: CLOZAPINE
  11. CLOZAPINE [Interacting]
     Active Substance: CLOZAPINE
  12. CLOZAPINE [Interacting]
     Active Substance: CLOZAPINE
  13. CLOZAPINE [Interacting]
     Active Substance: CLOZAPINE
  14. CLOZAPINE [Interacting]
     Active Substance: CLOZAPINE
  15. CLOZAPINE [Interacting]
     Active Substance: CLOZAPINE
  16. DOXYCYCLINE [Concomitant]
     Active Substance: DOXYCYCLINE
     Indication: Cellulitis
  17. VANCOMYCIN [Concomitant]
     Active Substance: VANCOMYCIN
     Indication: Cellulitis
  18. CEFTRIAXONE [Concomitant]
     Active Substance: CEFTRIAXONE
     Indication: Cellulitis
  19. CEFAZOLIN [Concomitant]
     Active Substance: CEFAZOLIN
     Indication: Cellulitis
  20. TOBRAMYCIN [Concomitant]
     Active Substance: TOBRAMYCIN
     Indication: Cellulitis
  21. ERTAPENEM [Concomitant]
     Active Substance: ERTAPENEM
     Indication: Cellulitis
  22. CEPHALEXIN [Concomitant]
     Active Substance: CEPHALEXIN
     Indication: Cellulitis
  23. CEPHALEXIN [Concomitant]
     Active Substance: CEPHALEXIN
     Indication: Enterobacter infection
  24. ALBUTEROL SULFATE [Concomitant]
     Active Substance: ALBUTEROL SULFATE
     Indication: Chronic obstructive pulmonary disease
     Dosage: UNK, 4X/DAY (90 HFA)
     Route: 055
  25. DIVALPROEX SODIUM [Concomitant]
     Active Substance: DIVALPROEX SODIUM
     Indication: Seizure
     Dosage: 1750 MG, 1X/DAY (EXTENDED RELEASE, AT NIGHT)
     Route: 048
  26. BETAMETHASONE DIPROPIONATE [Concomitant]
     Active Substance: BETAMETHASONE DIPROPIONATE
     Indication: Dermatosis
     Dosage: UNK, 2X/DAY
     Route: 061
  27. CLOBETASOL [Concomitant]
     Active Substance: CLOBETASOL
     Indication: Dermatosis
     Dosage: UNK, 2X/DAY
     Route: 061
  28. LATANOPROST [Concomitant]
     Active Substance: LATANOPROST
     Indication: Glaucoma
     Dosage: UNK, 1X/DAY (PLACE 1 DROP INTO BOTH EYES NIGHTLY)
  29. CHOLECALCIFEROL [Concomitant]
     Active Substance: CHOLECALCIFEROL
     Indication: Vitamin D deficiency
     Dosage: 1000 IU, 1X/DAY
     Route: 048
  30. MENTHOL\METHYL SALICYLATE [Concomitant]
     Active Substance: MENTHOL\METHYL SALICYLATE
     Indication: Analgesic therapy
     Dosage: UNK, 2X/DAY (APPLY TWICE A DAY TO THE AFFECTED AREAS; GREASELESS CREAM)
     Route: 061
  31. TACROLIMUS [Concomitant]
     Active Substance: TACROLIMUS
     Indication: Dermatitis contact
     Dosage: UNK, 1X/DAY (APPLY TOPICALLY DAILY AS NEEDED, PRN POUCH CHANGE TO WOUND BASE)
     Route: 061

REACTIONS (5)
  - Sedation [Recovering/Resolving]
  - Somnolence [Recovering/Resolving]
  - Fatigue [Unknown]
  - Antipsychotic drug level increased [Recovering/Resolving]
  - Drug interaction [Recovering/Resolving]
